FAERS Safety Report 7821157-6 (Version None)
Quarter: 2011Q4

REPORT INFORMATION
  Report Type: 
  Country: None (occurrence: None)
  Receive Date: 20111018
  Receipt Date: 20110922
  Transmission Date: 20120403
  Serious: Yes (Other)
  Sender: FDA-Public Use
  Company Number: US-ROCHE-509469

PATIENT
  Sex: Male
  Weight: 67.1 kg

DRUGS (1)
  1. ACCUTANE [Suspect]
     Indication: ACNE
     Route: 065
     Dates: start: 19990402, end: 19990828

REACTIONS (15)
  - LIP DRY [None]
  - ANXIETY [None]
  - DRY SKIN [None]
  - HEPATIC ENZYME INCREASED [None]
  - ANAEMIA [None]
  - CLOSTRIDIUM DIFFICILE COLITIS [None]
  - DYSPHAGIA [None]
  - NEUTROPENIA [None]
  - COLITIS ULCERATIVE [None]
  - PRURITUS [None]
  - ACNE [None]
  - CROHN'S DISEASE [None]
  - MARFAN'S SYNDROME [None]
  - INFLAMMATORY BOWEL DISEASE [None]
  - GALLBLADDER DISORDER [None]
